FAERS Safety Report 7952653-9 (Version None)
Quarter: 2011Q4

REPORT INFORMATION
  Report Type: 
  Country: None (occurrence: None)
  Receive Date: 20111201
  Receipt Date: 20111129
  Transmission Date: 20120403
  Serious: Yes (Other)
  Sender: FDA-Public Use
  Company Number: US-PFIZER INC-2011291727

PATIENT
  Sex: Female

DRUGS (2)
  1. CHANTIX [Suspect]
     Dosage: UNK
     Route: 048
     Dates: start: 20110101, end: 20111001
  2. CHANTIX [Suspect]
     Indication: SMOKING CESSATION THERAPY
     Dosage: 0.5 MG, 1X/DAY
     Route: 048
     Dates: start: 20110101, end: 20110101

REACTIONS (10)
  - LOCAL SWELLING [None]
  - PAIN [None]
  - MALAISE [None]
  - LYMPHADENOPATHY [None]
  - MIGRAINE [None]
  - HEADACHE [None]
  - THYROID DISORDER [None]
  - THYROIDITIS [None]
  - SWELLING FACE [None]
  - SWELLING [None]
